FAERS Safety Report 12714460 (Version 1)
Quarter: 2016Q3

REPORT INFORMATION
  Report Type: Spontaneous
  Country: US (occurrence: US)
  Receive Date: 20160905
  Receipt Date: 20160905
  Transmission Date: 20161109
  Serious: No
  Sender: FDA-Public Use
  Company Number: US-JAZZ-2016-US-008784

PATIENT
  Sex: Female

DRUGS (31)
  1. VITAMIN B12 [Concomitant]
     Active Substance: CYANOCOBALAMIN
  2. GABAPENTIN. [Concomitant]
     Active Substance: GABAPENTIN
  3. RIBOFLAVIN [Concomitant]
     Active Substance: RIBOFLAVIN
  4. ARTEMISININ [Concomitant]
     Active Substance: DIETARY SUPPLEMENT
  5. COARTEM [Concomitant]
     Active Substance: ARTEMETHER\LUMEFANTRINE
  6. FISH OIL [Concomitant]
     Active Substance: FISH OIL
  7. MULTIVITAMINS [Concomitant]
     Active Substance: VITAMINS
  8. LACTOFERRINA [Concomitant]
  9. LITHIUM. [Concomitant]
     Active Substance: LITHIUM
  10. MAGNESIUM GLYCINATE [Concomitant]
     Active Substance: MAGNESIUM GLYCINATE
  11. MARIJUANA [Concomitant]
     Active Substance: CANNABIS SATIVA SUBSP. INDICA TOP
  12. MELATONIN [Concomitant]
     Active Substance: MELATONIN
  13. MINOCYCLINE [Concomitant]
     Active Substance: MINOCYCLINE\MINOCYCLINE HYDROCHLORIDE
  14. SERIPHOS [Concomitant]
  15. VITAMIN C [Concomitant]
     Active Substance: ASCORBIC ACID
  16. XYREM [Suspect]
     Active Substance: SODIUM OXYBATE
     Indication: NARCOLEPSY
     Dosage: 2.25 G, BID
     Route: 048
     Dates: start: 201604, end: 201605
  17. ADDERALL [Concomitant]
     Active Substance: AMPHETAMINE ASPARTATE\AMPHETAMINE SULFATE\DEXTROAMPHETAMINE SACCHARATE\DEXTROAMPHETAMINE SULFATE
  18. ALBUTEROL SULFATE. [Concomitant]
     Active Substance: ALBUTEROL SULFATE
  19. CHARCOAL [Concomitant]
     Active Substance: ACTIVATED CHARCOAL
  20. CLARITIN [Concomitant]
     Active Substance: LORATADINE
  21. RITALIN [Concomitant]
     Active Substance: METHYLPHENIDATE HYDROCHLORIDE
  22. XYREM [Suspect]
     Active Substance: SODIUM OXYBATE
     Indication: CATAPLEXY
     Dosage: 3 G, BID
     Route: 048
     Dates: start: 201605
  23. PROBIOTICS [Concomitant]
     Active Substance: PROBIOTICS NOS
  24. VITAMIN D [Concomitant]
     Active Substance: CHOLECALCIFEROL
  25. ATOVAQUONE. [Concomitant]
     Active Substance: ATOVAQUONE
  26. CEFDINIR. [Concomitant]
     Active Substance: CEFDINIR
  27. PROGESTERONE. [Concomitant]
     Active Substance: PROGESTERONE
  28. PYRIDOXAL PHOSPHATE [Concomitant]
     Active Substance: PYRIDOXAL PHOSPHATE
  29. NYSTATIN. [Concomitant]
     Active Substance: NYSTATIN
  30. SACRO B [Concomitant]
  31. XYLITOL [Concomitant]
     Active Substance: XYLITOL

REACTIONS (2)
  - Seasonal allergy [Not Recovered/Not Resolved]
  - Urticaria [Not Recovered/Not Resolved]

NARRATIVE: CASE EVENT DATE: 2016
